FAERS Safety Report 7347406-9 (Version None)
Quarter: 2011Q1

REPORT INFORMATION
  Report Type: 
  Country: None (occurrence: None)
  Receive Date: 20110311
  Receipt Date: 20110307
  Transmission Date: 20110831
  Serious: Yes (Death, Other)
  Sender: FDA-Public Use
  Company Number: IL-CELGENEUS-082-C5013-10110403

PATIENT
  Sex: Male
  Weight: 89.3 kg

DRUGS (34)
  1. LENALIDOMIDE [Suspect]
     Dosage: 10 MILLIGRAM
     Route: 048
     Dates: start: 20071227, end: 20080623
  2. WHOLE BLOOD [Concomitant]
     Indication: PANCYTOPENIA
     Route: 051
     Dates: start: 20090128, end: 20090128
  3. WHOLE BLOOD [Concomitant]
     Dosage: 2 UNITS
     Route: 051
     Dates: start: 20100126, end: 20100126
  4. GASTRO [Concomitant]
     Route: 065
  5. MELPHALAN HYDROCHLORIDE [Suspect]
     Route: 048
     Dates: end: 20081022
  6. REVLIMID [Suspect]
     Route: 065
  7. SPIRONOLACTONE [Concomitant]
     Route: 065
  8. DOPAMINE [Concomitant]
     Route: 065
     Dates: start: 20100301
  9. WHOLE BLOOD [Concomitant]
     Route: 051
     Dates: start: 20100223, end: 20100223
  10. ZAROXOLYN [Concomitant]
     Route: 065
  11. MELPHALAN HYDROCHLORIDE [Suspect]
     Route: 048
     Dates: start: 20071227
  12. WHOLE BLOOD [Concomitant]
     Route: 051
     Dates: start: 20091224, end: 20091224
  13. WHOLE BLOOD [Concomitant]
     Dosage: 2 UNITS
     Route: 051
     Dates: start: 20100214, end: 20100214
  14. WHOLE BLOOD [Concomitant]
     Route: 051
     Dates: start: 20100304, end: 20100304
  15. NEUPOGEN [Concomitant]
     Indication: NEUTROPENIA
     Route: 065
     Dates: start: 20080117, end: 20090217
  16. PREDNISONE TAB [Suspect]
     Route: 048
     Dates: end: 20081022
  17. WHOLE BLOOD [Concomitant]
     Route: 051
     Dates: start: 20100106, end: 20100106
  18. DOPAMINE [Concomitant]
  19. NEUPOGEN [Concomitant]
     Indication: PANCYTOPENIA
     Route: 051
     Dates: start: 20070801
  20. EPOETIN BETA [Concomitant]
     Indication: ANAEMIA
     Route: 065
     Dates: start: 20080326, end: 20100319
  21. WHOLE BLOOD [Concomitant]
     Dosage: 2 UNITS
     Route: 051
     Dates: start: 20100301, end: 20100301
  22. FUROSEMIDE [Concomitant]
     Route: 065
  23. NEUPOGEN [Concomitant]
     Indication: NEUTROPENIA
  24. PREDNISONE [Suspect]
     Route: 048
     Dates: start: 20071227
  25. WHOLE BLOOD [Concomitant]
     Route: 051
     Dates: start: 20090331, end: 20090331
  26. WHOLE BLOOD [Concomitant]
     Route: 051
     Dates: start: 20100207, end: 20100207
  27. WHOLE BLOOD [Concomitant]
     Route: 051
     Dates: start: 20100218, end: 20100218
  28. SIMVASTATIN [Concomitant]
     Route: 065
  29. LOSARTAN POTASSIUM [Concomitant]
     Route: 065
  30. OXYGEN [Concomitant]
     Route: 065
  31. LENALIDOMIDE [Suspect]
     Dosage: 10 MILLIGRAM
     Route: 048
     Dates: start: 20080806, end: 20090203
  32. WHOLE BLOOD [Concomitant]
     Route: 051
     Dates: start: 20091206, end: 20091207
  33. WHOLE BLOOD [Concomitant]
     Dosage: 2 UNITS
     Route: 051
     Dates: start: 20100121, end: 20100121
  34. RECORMON [Concomitant]
     Route: 065

REACTIONS (18)
  - ACUTE MYELOID LEUKAEMIA [None]
  - ATRIAL FIBRILLATION [None]
  - NEUTROPENIA [None]
  - PLATELET COUNT DECREASED [None]
  - MONOCYTE PERCENTAGE INCREASED [None]
  - AORTIC VALVE INCOMPETENCE [None]
  - AORTIC VALVE CALCIFICATION [None]
  - PYREXIA [None]
  - BLOOD UREA INCREASED [None]
  - LYMPHOCYTE PERCENTAGE INCREASED [None]
  - MYOCARDIAL ISCHAEMIA [None]
  - CARDIAC MURMUR [None]
  - BUNDLE BRANCH BLOCK LEFT [None]
  - BLOOD CREATININE INCREASED [None]
  - HAEMOGLOBIN DECREASED [None]
  - LEFT ATRIAL DILATATION [None]
  - OEDEMA PERIPHERAL [None]
  - WHITE BLOOD CELL COUNT DECREASED [None]
